FAERS Safety Report 6644713-X (Version None)
Quarter: 2010Q1

REPORT INFORMATION
  Report Type: 
  Country: None (occurrence: None)
  Receive Date: 20100318
  Receipt Date: 20100318
  Transmission Date: 20100710
  Serious: Yes (Hospitalization)
  Sender: FDA-Public Use
  Company Number: None

PATIENT
  Age: 67 Year
  Sex: Male
  Weight: 119.7 kg

DRUGS (1)
  1. ZOLPIDEM [Suspect]
     Dosage: 10 MG AT BEDTIME PO
     Route: 048
     Dates: start: 20091124, end: 20100112

REACTIONS (5)
  - HYPERCAPNIA [None]
  - METABOLIC ALKALOSIS [None]
  - PNEUMONIA ASPIRATION [None]
  - PULMONARY OEDEMA [None]
  - RESPIRATORY FAILURE [None]
